FAERS Safety Report 8108782-2 (Version None)
Quarter: 2012Q1

REPORT INFORMATION
  Report Type: 
  Country: None (occurrence: None)
  Receive Date: 20120202
  Receipt Date: 20120116
  Transmission Date: 20120608
  Serious: No
  Sender: FDA-Public Use
  Company Number: US-AMGEN-USASP2012002812

PATIENT
  Age: 65 Year
  Sex: Female

DRUGS (1)
  1. ENBREL [Suspect]
     Indication: PSORIATIC ARTHROPATHY
     Dosage: 50 MG, QWK
     Dates: start: 20120111

REACTIONS (3)
  - JOINT SWELLING [None]
  - ARTHRALGIA [None]
  - PALPITATIONS [None]
